FAERS Safety Report 20811127 (Version 2)
Quarter: 2022Q2

REPORT INFORMATION
  Report Type: Spontaneous
  Country: GB (occurrence: GB)
  Receive Date: 20220510
  Receipt Date: 20220517
  Transmission Date: 20220720
  Serious: Yes (Hospitalization)
  Sender: FDA-Public Use
  Company Number: GB-BIOMARINAP-GB-2022-142885

PATIENT
  Sex: Female

DRUGS (1)
  1. VIMIZIM [Suspect]
     Active Substance: ELOSULFASE ALFA
     Indication: Mucopolysaccharidosis IV
     Dosage: 35 MILLIGRAM, QW
     Route: 042

REACTIONS (5)
  - Skin infection [Recovering/Resolving]
  - Skin disorder [Recovering/Resolving]
  - Catheter site infection [Recovering/Resolving]
  - Catheter site haemorrhage [Recovering/Resolving]
  - Wound [Recovering/Resolving]
